FAERS Safety Report 17112456 (Version 1)
Quarter: 2019Q4

REPORT INFORMATION
  Report Type: Spontaneous
  Country: US (occurrence: US)
  Receive Date: 20191204
  Receipt Date: 20191204
  Transmission Date: 20200122
  Serious: Yes (Other)
  Sender: FDA-Public Use
  Company Number: US-JNJFOC-20191138872

PATIENT
  Age: 56 Year
  Sex: Female
  Weight: 147.55 kg

DRUGS (11)
  1. METOPROLOL. [Concomitant]
     Active Substance: METOPROLOL
     Indication: HEART RATE ABNORMAL
     Dates: start: 201505
  2. CLARITIN [Concomitant]
     Active Substance: LORATADINE
  3. BIOTIN [Concomitant]
     Active Substance: BIOTIN
     Indication: HAIR DISORDER
  4. XARELTO [Suspect]
     Active Substance: RIVAROXABAN
     Indication: PULMONARY EMBOLISM
  5. ADVAIR HFA [Concomitant]
     Active Substance: FLUTICASONE PROPIONATE\SALMETEROL XINAFOATE
  6. SINGULAIR [Concomitant]
     Active Substance: MONTELUKAST SODIUM
  7. BIOTIN [Concomitant]
     Active Substance: BIOTIN
     Indication: NAIL DISORDER
  8. VITAMIN D3 [Concomitant]
     Active Substance: CHOLECALCIFEROL
     Indication: VITAMIN D DEFICIENCY
  9. PEPCID [Concomitant]
     Active Substance: FAMOTIDINE
  10. XARELTO [Suspect]
     Active Substance: RIVAROXABAN
     Indication: ATRIAL FIBRILLATION
     Route: 048
     Dates: start: 201505
  11. AMIODARONE [Concomitant]
     Active Substance: AMIODARONE
     Indication: HEART RATE ABNORMAL
     Dates: start: 201505, end: 201804

REACTIONS (5)
  - Rotator cuff syndrome [Unknown]
  - High frequency ablation [Unknown]
  - Road traffic accident [Unknown]
  - Intervertebral disc protrusion [Unknown]
  - Cartilage injury [Unknown]

NARRATIVE: CASE EVENT DATE: 20160718
